FAERS Safety Report 5367818-2 (Version None)
Quarter: 2007Q2

REPORT INFORMATION
  Report Type: 
  Country: None (occurrence: None)
  Receive Date: 20070622
  Receipt Date: 20070611
  Transmission Date: 20071010
  Serious: Yes (Hospitalization, Other)
  Sender: FDA-Public Use
  Company Number: US-PFIZER INC-2005154314

PATIENT
  Age: 81 Year
  Sex: Male

DRUGS (8)
  1. LYRICA [Interacting]
     Indication: NEUROPATHY PERIPHERAL
     Route: 048
     Dates: start: 20051005, end: 20051012
  2. WARFARIN SODIUM [Interacting]
     Indication: ATRIAL FIBRILLATION
     Route: 048
  3. ASPIRIN [Suspect]
     Indication: ILL-DEFINED DISORDER
     Route: 048
  4. ZOCOR [Concomitant]
     Route: 048
  5. OMEGA 3 [Concomitant]
     Route: 048
  6. XANAX [Concomitant]
     Route: 048
  7. OXYCODONE HCL [Concomitant]
     Route: 048
  8. ATROVENT [Concomitant]
     Route: 065

REACTIONS (14)
  - ANAEMIA MACROCYTIC [None]
  - BLOOD ALBUMIN DECREASED [None]
  - BLOOD UREA INCREASED [None]
  - CARDIAC MURMUR [None]
  - CLUBBING [None]
  - DRUG INTERACTION [None]
  - DYSPHAGIA [None]
  - DYSPNOEA [None]
  - MEGAKARYOCYTES INCREASED [None]
  - OEDEMA PERIPHERAL [None]
  - POLLAKIURIA [None]
  - RASH [None]
  - THROMBOCYTOPENIA [None]
  - WEIGHT DECREASED [None]
